FAERS Safety Report 15435638 (Version 3)
Quarter: 2019Q1

REPORT INFORMATION
  Report Type: Report from Study
  Country: CA (occurrence: CA)
  Receive Date: 20180927
  Receipt Date: 20190212
  Transmission Date: 20190417
  Serious: Yes (Other)
  Sender: FDA-Public Use
  Company Number: PHHY2018CA019705

PATIENT
  Age: 61 Year
  Sex: Female

DRUGS (15)
  1. XOLAIR [Suspect]
     Active Substance: OMALIZUMAB
     Dosage: UNK
     Route: 058
     Dates: start: 20180320
  2. XOLAIR [Suspect]
     Active Substance: OMALIZUMAB
     Dosage: 375 MG, BIW
     Route: 058
     Dates: start: 20180822
  3. XOLAIR [Suspect]
     Active Substance: OMALIZUMAB
     Dosage: 375 MG, BIW
     Route: 058
     Dates: start: 20180904
  4. KEPPRA [Concomitant]
     Active Substance: LEVETIRACETAM
     Indication: EPILEPSY
     Route: 065
  5. MIRTAZAPINE. [Concomitant]
     Active Substance: MIRTAZAPINE
     Indication: DEPRESSION
     Route: 065
  6. XOLAIR [Suspect]
     Active Substance: OMALIZUMAB
     Dosage: 375 MG, BIW
     Route: 058
     Dates: start: 20180807
  7. SYMBICORT [Concomitant]
     Active Substance: BUDESONIDE\FORMOTEROL FUMARATE DIHYDRATE
     Indication: ASTHMA
     Dosage: 2 DF, QID
     Route: 055
     Dates: start: 2000
  8. XOLAIR [Suspect]
     Active Substance: OMALIZUMAB
     Dosage: 375 MG, BIW
     Route: 058
     Dates: start: 20190115
  9. XOLAIR [Suspect]
     Active Substance: OMALIZUMAB
     Dosage: 375 MG, BIW
     Route: 058
     Dates: start: 20180227
  10. CLONAZEPAM. [Suspect]
     Active Substance: CLONAZEPAM
     Indication: EPILEPSY
     Dosage: UNK
     Route: 065
  11. PREDNISONE. [Concomitant]
     Active Substance: PREDNISONE
     Indication: PRODUCT USED FOR UNKNOWN INDICATION
     Route: 065
  12. XOLAIR [Suspect]
     Active Substance: OMALIZUMAB
     Indication: ASTHMA
     Dosage: 375 MG, BIW
     Route: 058
     Dates: start: 20170815
  13. XOLAIR [Suspect]
     Active Substance: OMALIZUMAB
     Dosage: 375 MG, BIW
     Route: 058
     Dates: start: 20180501
  14. VENTOLIN [Concomitant]
     Active Substance: ALBUTEROL SULFATE
     Indication: ASTHMA
     Dosage: 2 DF, PRN
     Route: 055
  15. GABAPENTIN. [Concomitant]
     Active Substance: GABAPENTIN
     Indication: PAIN IN EXTREMITY
     Route: 065

REACTIONS (28)
  - Chest discomfort [Unknown]
  - Discomfort [Unknown]
  - Asthma [Unknown]
  - Food intolerance [Unknown]
  - Dust allergy [Unknown]
  - Influenza [Unknown]
  - Pain [Unknown]
  - Dyspnoea exertional [Unknown]
  - Oxygen saturation decreased [Unknown]
  - Influenza like illness [Recovering/Resolving]
  - Diabetes mellitus [Unknown]
  - Throat irritation [Unknown]
  - Lower respiratory tract congestion [Unknown]
  - Dyspnoea [Unknown]
  - Nasopharyngitis [Unknown]
  - Fatigue [Unknown]
  - Eye swelling [Recovering/Resolving]
  - Obesity [Unknown]
  - Gastrointestinal disorder [Unknown]
  - Malaise [Unknown]
  - Perfume sensitivity [Unknown]
  - Wheezing [Unknown]
  - Vomiting [Unknown]
  - Dyspnoea at rest [Unknown]
  - Sensitivity to weather change [Unknown]
  - Cough [Recovering/Resolving]
  - Nausea [Unknown]
  - Weight decreased [Unknown]

NARRATIVE: CASE EVENT DATE: 2018
